FAERS Safety Report 8275053-3 (Version None)
Quarter: 2012Q1

REPORT INFORMATION
  Report Type: 
  Country: None (occurrence: None)
  Receive Date: 20120309
  Receipt Date: 20120131
  Transmission Date: 20120608
  Serious: No
  Sender: FDA-Public Use
  Company Number: TH-2012-00096

PATIENT
  Sex: Female
  Weight: 57 kg

DRUGS (6)
  1. ISENTRESS [Concomitant]
  2. OXANDROLONE (OCANDROLONE) [Concomitant]
  3. MEGACE [Concomitant]
  4. MARINOL (ALLOPURINOL) [Concomitant]
  5. EGRIFTA [Suspect]
     Indication: LIPODYSTROPHY ACQUIRED
     Dosage: 1 IN 1 D, SUBCUTANEOUS
     Route: 058
  6. EPZICOM (LAMIVUDINE, ABACAVIR SULFATE) [Concomitant]

REACTIONS (8)
  - ASTHENIA [None]
  - MYALGIA [None]
  - ARTHRALGIA [None]
  - FATIGUE [None]
  - BACK PAIN [None]
  - MUSCULOSKELETAL STIFFNESS [None]
  - MUSCULAR WEAKNESS [None]
  - NECK PAIN [None]
